FAERS Safety Report 9554492 (Version 1)
Quarter: 2013Q3

REPORT INFORMATION
  Report Type: Spontaneous
  Country: US (occurrence: US)
  Receive Date: 20130925
  Receipt Date: 20130925
  Transmission Date: 20140515
  Serious: Yes (Hospitalization)
  Sender: FDA-Public Use
  Company Number: US-B.I. PHARMACEUTICALS,INC./RIDGEFIELD-2013-BI-29694BP

PATIENT
  Age: 43 Year
  Sex: Female
  Weight: 72 kg

DRUGS (16)
  1. SPIRIVA [Suspect]
     Indication: CHRONIC OBSTRUCTIVE PULMONARY DISEASE
     Dosage: 18 MCG
     Route: 055
     Dates: start: 201209
  2. COMBIVENT [Suspect]
     Indication: CHRONIC OBSTRUCTIVE PULMONARY DISEASE
     Dosage: DOSE PER APPLICATION: 18 MCG / 103 MCG; DAILY DOSE: 144MCG/824MCG
     Route: 055
     Dates: start: 2009, end: 20130602
  3. COMBIVENT [Suspect]
     Indication: CHRONIC OBSTRUCTIVE PULMONARY DISEASE
     Dosage: DOSE PER APPLICATION: 20 MCG / 100 MCG; DAILY DOSE: 80MCG/400MCG
     Route: 055
     Dates: start: 20130603
  4. FIORICET [Concomitant]
     Route: 048
  5. SYMBICORT [Concomitant]
     Indication: CHRONIC OBSTRUCTIVE PULMONARY DISEASE
     Route: 055
  6. BUMEX [Concomitant]
     Route: 048
  7. IBUPROFEN [Concomitant]
     Dosage: 1600 MG
     Route: 048
  8. PRILOSEC [Concomitant]
     Route: 048
  9. SUBOXONE [Concomitant]
     Route: 048
  10. SEROQUEL [Concomitant]
     Dosage: 100 MG
     Route: 048
  11. SEROQUEL [Concomitant]
     Dosage: (TABLET) STRENGTH: 200MG; DAILY DOSE: 200MG
     Route: 048
  12. PHENERGAN [Concomitant]
     Indication: NAUSEA
     Route: 048
  13. ZOLOFT [Concomitant]
     Indication: DEPRESSION
     Dosage: 200 MG
     Route: 048
  14. COREG [Concomitant]
     Route: 048
  15. IMITREX [Concomitant]
     Indication: MIGRAINE
     Dosage: FORMULATION: (SUBCUTANEOUS)
     Route: 058
  16. ALDACTONE [Concomitant]
     Route: 048

REACTIONS (2)
  - Cardiac failure congestive [Recovered/Resolved]
  - Dyspnoea [Not Recovered/Not Resolved]
